FAERS Safety Report 5197585-7 (Version None)
Quarter: 2007Q1

REPORT INFORMATION
  Report Type: 
  Country: None (occurrence: None)
  Receive Date: 20070103
  Receipt Date: 20061222
  Transmission Date: 20070707
  Serious: No
  Sender: FDA-Public Use
  Company Number: US-PFIZER INC-2006125335

PATIENT
  Sex: Female
  Weight: 81.6 kg

DRUGS (7)
  1. LYRICA [Suspect]
     Indication: POST HERPETIC NEURALGIA
     Route: 048
  2. NEURONTIN [Suspect]
     Indication: PAIN
  3. IBUPROFEN [Suspect]
  4. MONOPRIL [Concomitant]
     Indication: HYPERTENSION
  5. ADALAT [Concomitant]
     Indication: HYPERTENSION
  6. PROVERA [Concomitant]
  7. PREMARIN [Concomitant]

REACTIONS (11)
  - BREAKTHROUGH PAIN [None]
  - BURNING SENSATION [None]
  - DRUG HYPERSENSITIVITY [None]
  - FEELING HOT [None]
  - HYPOAESTHESIA [None]
  - PAIN [None]
  - PAIN IN EXTREMITY [None]
  - POST HERPETIC NEURALGIA [None]
  - SOMNOLENCE [None]
  - SWELLING [None]
  - URTICARIA [None]
